FAERS Safety Report 19279297 (Version 3)
Quarter: 2021Q2

REPORT INFORMATION
  Report Type: Report from Study
  Country: US (occurrence: US)
  Receive Date: 20210520
  Receipt Date: 20210625
  Transmission Date: 20210717
  Serious: Yes (Hospitalization, Other)
  Sender: FDA-Public Use
  Company Number: US-BAYER-2021-142545

PATIENT
  Age: 68 Year
  Sex: Female
  Weight: 113.83 kg

DRUGS (8)
  1. TYVASO [Suspect]
     Active Substance: TREPROSTINIL
     Indication: PULMONARY ARTERIAL HYPERTENSION
     Dosage: UNK
  2. ADEMPAS [Suspect]
     Active Substance: RIOCIGUAT
     Indication: PULMONARY ARTERIAL HYPERTENSION
     Dosage: UNK
     Dates: start: 20200305
  3. ADEMPAS [Suspect]
     Active Substance: RIOCIGUAT
     Indication: PULMONARY ARTERIAL HYPERTENSION
     Dosage: UNK
  4. TYVASO [Suspect]
     Active Substance: TREPROSTINIL
     Indication: PULMONARY ARTERIAL HYPERTENSION
     Dosage: UNK
  5. TYVASO [Suspect]
     Active Substance: TREPROSTINIL
     Indication: PULMONARY ARTERIAL HYPERTENSION
     Dosage: UNK
     Dates: start: 20200713
  6. ADEMPAS [Suspect]
     Active Substance: RIOCIGUAT
     Indication: PULMONARY ARTERIAL HYPERTENSION
     Dosage: 0.5 MG, TID
     Route: 048
  7. OPSUMIT [Concomitant]
     Active Substance: MACITENTAN
     Dosage: UNK
  8. DILTIAZEM. [Concomitant]
     Active Substance: DILTIAZEM
     Dosage: UNK

REACTIONS (18)
  - Hypotension [None]
  - Adenoma benign [None]
  - Splenic lesion [Not Recovered/Not Resolved]
  - Haemorrhage [None]
  - Back pain [Not Recovered/Not Resolved]
  - Hypotension [None]
  - Transferrin saturation decreased [None]
  - Vertebral column mass [Not Recovered/Not Resolved]
  - Pain in extremity [None]
  - Von Willebrand^s disease [None]
  - Spinal operation [None]
  - Chronic gastritis [None]
  - Reticulocyte count abnormal [Recovering/Resolving]
  - Oesophagitis [None]
  - Oxygen saturation decreased [Not Recovered/Not Resolved]
  - Intervertebral disc protrusion [None]
  - Microcytic anaemia [None]
  - Contusion [None]

NARRATIVE: CASE EVENT DATE: 202104
